FAERS Safety Report 4307424-1 (Version None)
Quarter: 2004Q1

REPORT INFORMATION
  Report Type: 
  Country: None (occurrence: None)
  Receive Date: 20040226
  Receipt Date: 20040212
  Transmission Date: 20041129
  Serious: Yes (Hospitalization)
  Sender: FDA-Public Use
  Company Number: 2004006647

PATIENT
  Age: 22 Year
  Sex: Female

DRUGS (2)
  1. ZITHROMAX [Suspect]
     Indication: PERIODONTITIS
     Dosage: 500 MG, ORAL
     Route: 048
     Dates: start: 20040106
  2. SEIROGAN (GLYCYRRHIZA EXTRACT, CREOSOTE, HERBAL EXTRACTS NOS) [Concomitant]

REACTIONS (4)
  - ANTINUCLEAR ANTIBODY POSITIVE [None]
  - CARDITIS [None]
  - COLLAGEN-VASCULAR DISEASE [None]
  - VIRAL INFECTION [None]
